FAERS Safety Report 21130203 (Version 1)
Quarter: 2022Q3

REPORT INFORMATION
  Report Type: Spontaneous
  Country: US (occurrence: US)
  Receive Date: 20220726
  Receipt Date: 20220726
  Transmission Date: 20221026
  Serious: No
  Sender: FDA-Public Use
  Company Number: US-ORGANON-O2207USA001392

PATIENT
  Sex: Female

DRUGS (1)
  1. NEXPLANON [Suspect]
     Active Substance: ETONOGESTREL
     Dosage: 1 ROD (68 MILLIGRAM EVERY 3 YEARS)
     Route: 059
     Dates: start: 2021

REACTIONS (2)
  - Abnormal uterine bleeding [Unknown]
  - Device breakage [Recovered/Resolved]
